FAERS Safety Report 9928986 (Version 2)
Quarter: 2014Q2

REPORT INFORMATION
  Report Type: Spontaneous
  Country: IT (occurrence: IT)
  Receive Date: 20140227
  Receipt Date: 20140603
  Transmission Date: 20141212
  Serious: Yes (Other)
  Sender: FDA-Public Use
  Company Number: IT-ACTAVIS-2014-03100

PATIENT
  Age: 66 Year
  Sex: Male

DRUGS (2)
  1. PERINDOPRIL (UNKNOWN) [Suspect]
     Indication: HYPERTENSION
     Dosage: 1 POSOLOGICAL UNIT/DAILY
     Route: 048
     Dates: start: 20131207, end: 20131215
  2. INDAPAMIDE (UNKNOWN) [Suspect]
     Indication: HYPERTENSION
     Dosage: 1 POSOLOGICAL UNIT/DAILY
     Route: 048
     Dates: start: 20131207, end: 20131215

REACTIONS (3)
  - Hepatotoxicity [Recovering/Resolving]
  - Pruritus [Recovering/Resolving]
  - Lichenoid keratosis [Recovering/Resolving]
